FAERS Safety Report 4364086-5 (Version None)
Quarter: 2004Q2

REPORT INFORMATION
  Report Type: 
  Country: None (occurrence: None)
  Receive Date: 20040519
  Receipt Date: 20040507
  Transmission Date: 20050107
  Serious: Yes (Other)
  Sender: FDA-Public Use
  Company Number: JP-JNJFOC-20040405437

PATIENT
  Age: 25 Year
  Sex: Female
  Weight: 55 kg

DRUGS (11)
  1. REMICADE [Suspect]
     Indication: ANAL FISTULA
     Dosage: 275 MG  1 IN 1 AS NECESSARY, INTRAVENOUS DRIP
     Route: 041
     Dates: start: 20020826, end: 20020826
  2. REMICADE [Suspect]
     Indication: CROHN'S DISEASE
     Dosage: 275 MG  1 IN 1 AS NECESSARY, INTRAVENOUS DRIP
     Route: 041
     Dates: start: 20020826, end: 20020826
  3. REMICADE [Suspect]
     Indication: ANAL FISTULA
     Dosage: 275 MG  1 IN 1 AS NECESSARY, INTRAVENOUS DRIP
     Route: 041
     Dates: start: 20040407, end: 20040407
  4. REMICADE [Suspect]
     Indication: CROHN'S DISEASE
     Dosage: 275 MG  1 IN 1 AS NECESSARY, INTRAVENOUS DRIP
     Route: 041
     Dates: start: 20040407, end: 20040407
  5. PREDNISOLONE [Suspect]
     Indication: CROHN'S DISEASE
     Dosage: 20 MG, 1 IN  , ORAL
     Route: 048
     Dates: start: 20040320, end: 20040423
  6. IVH (PARENTERAL) [Concomitant]
  7. PENTASA (TABLETS) MESALAZINE [Concomitant]
  8. ENTERAL NUTRITION (SOLUTIONS FOR PARENTERAL NUTRITION) [Concomitant]
  9. HEMOCURON (TRIBENOSIDE)TABLETS [Concomitant]
  10. INTAL (CROMOGLICATE SODIUIM) [Concomitant]
  11. FRAGILE (ALL OTHER THERAPEUTIC PRODUCTS) [Concomitant]

REACTIONS (6)
  - ARTHRALGIA [None]
  - BACK PAIN [None]
  - CATHETER RELATED INFECTION [None]
  - CATHETER SEPSIS [None]
  - DRUG INEFFECTIVE [None]
  - VOMITING [None]
